FAERS Safety Report 7334209-4 (Version None)
Quarter: 2011Q1

REPORT INFORMATION
  Report Type: 
  Country: None (occurrence: None)
  Receive Date: 20110307
  Receipt Date: 20100723
  Transmission Date: 20110831
  Serious: Yes (Other)
  Sender: FDA-Public Use
  Company Number: US-BAYER-201015523NA

PATIENT
  Sex: Female
  Weight: 72.562 kg

DRUGS (8)
  1. TRAMADOL HCL [Concomitant]
     Dosage: 50 MG
     Dates: start: 20080312
  2. PRAVACHOL [Concomitant]
     Indication: BLOOD CHOLESTEROL INCREASED
     Dosage: UNK
     Dates: start: 20080312
  3. PRAVASTATIN [Concomitant]
     Dosage: 20 MG
  4. YAZ [Suspect]
     Indication: CONTRACEPTION
     Dosage: UNK
     Route: 048
     Dates: start: 20070512, end: 20080324
  5. PREDNISONE [Concomitant]
     Dosage: 10 MG
     Dates: start: 20080312
  6. NASONEX [Concomitant]
     Dosage: UNK
     Dates: start: 20080312
  7. UNCODEABLE ^UNCLASSIFIABLE^ [Concomitant]
  8. ADVIL LIQUI-GELS [Concomitant]
     Dosage: UNK
     Dates: start: 20080312

REACTIONS (1)
  - DEEP VEIN THROMBOSIS [None]
